FAERS Safety Report 9057383 (Version 2)
Quarter: 2014Q3

REPORT INFORMATION
  Report Type: Spontaneous
  Country: US (occurrence: US)
  Receive Date: 20130204
  Receipt Date: 20140919
  Transmission Date: 20150326
  Serious: Yes (Death)
  Sender: FDA-Public Use
  Company Number: US-MYLANLABS-2013S1001947

PATIENT

DRUGS (2)
  1. CYSTAGON [Suspect]
     Active Substance: CYSTEAMINE BITARTRATE
     Indication: AMINO ACID METABOLISM DISORDER
  2. CYSTAGON [Suspect]
     Active Substance: CYSTEAMINE BITARTRATE
     Indication: AMINO ACID METABOLISM DISORDER
     Dosage: 400 MG,QID
     Route: 048
     Dates: start: 20020205, end: 20130120

REACTIONS (3)
  - Cardiac failure [Fatal]
  - Pulmonary oedema [Fatal]
  - Dyspnoea [Fatal]

NARRATIVE: CASE EVENT DATE: 20130120
